FAERS Safety Report 19509595 (Version 5)
Quarter: 2024Q2

REPORT INFORMATION
  Report Type: Report from Study
  Country: US (occurrence: US)
  Receive Date: 20210709
  Receipt Date: 20240506
  Transmission Date: 20240716
  Serious: No
  Sender: FDA-Public Use
  Company Number: US-ACADIA PHARMACEUTICALS INC.-ACA-2021-PIM-002244

PATIENT
  Age: 71 Year
  Sex: Female

DRUGS (19)
  1. NUPLAZID [Suspect]
     Active Substance: PIMAVANSERIN TARTRATE
     Indication: Parkinson^s disease
     Dosage: 34 MILLIGRAM, QD
     Route: 048
  2. NUPLAZID [Suspect]
     Active Substance: PIMAVANSERIN TARTRATE
     Dosage: 34 MILLIGRAM, QD
     Route: 048
     Dates: start: 202210
  3. NUPLAZID [Suspect]
     Active Substance: PIMAVANSERIN TARTRATE
     Indication: Parkinson^s disease
     Dosage: 10 MILLIGRAM, QD
     Route: 048
     Dates: start: 20210629
  4. SEROQUEL [Suspect]
     Active Substance: QUETIAPINE FUMARATE
  5. CLOZAPINE [Suspect]
     Active Substance: CLOZAPINE
  6. AMANTADINE [Concomitant]
     Active Substance: AMANTADINE
  7. ASPIRIN [Concomitant]
     Active Substance: ASPIRIN
  8. ATORVASTATIN [Concomitant]
     Active Substance: ATORVASTATIN
  9. CLONAZEPAM [Concomitant]
     Active Substance: CLONAZEPAM
  10. LANSOPRAZOLE [Concomitant]
     Active Substance: LANSOPRAZOLE
  11. LEVOTHYROXINE [Concomitant]
     Active Substance: LEVOTHYROXINE\LEVOTHYROXINE SODIUM
  12. MAGNESIUM [Concomitant]
     Active Substance: MAGNESIUM
  13. MEMANTINE [Concomitant]
     Active Substance: MEMANTINE
  14. PAROXETINE [Concomitant]
     Active Substance: PAROXETINE
  15. ROPINIROLE [Concomitant]
     Active Substance: ROPINIROLE
  16. SINEMET [Concomitant]
     Active Substance: CARBIDOPA\LEVODOPA
  17. TOPIRAMATE [Concomitant]
     Active Substance: TOPIRAMATE
  18. VITAMIN B12 [Concomitant]
     Active Substance: CYANOCOBALAMIN
  19. VITAMIN D3 [Concomitant]
     Active Substance: CHOLECALCIFEROL

REACTIONS (8)
  - Fatigue [Unknown]
  - Back pain [Unknown]
  - Adverse drug reaction [Not Recovered/Not Resolved]
  - Fatigue [Not Recovered/Not Resolved]
  - Anxiety [Not Recovered/Not Resolved]
  - Hallucination [Unknown]
  - Gait disturbance [Unknown]
  - Confusional state [Not Recovered/Not Resolved]

NARRATIVE: CASE EVENT DATE: 20210501
